FAERS Safety Report 8542599-X (Version None)
Quarter: 2012Q3

REPORT INFORMATION
  Report Type: 
  Country: None (occurrence: None)
  Receive Date: 20120726
  Receipt Date: 20120719
  Transmission Date: 20120928
  Serious: No
  Sender: FDA-Public Use
  Company Number: US-009507513-1207USA007573

PATIENT

DRUGS (9)
  1. PEG-INTRON [Suspect]
     Dosage: 150 MICROGRAM, QW
     Route: 058
  2. OMEPRAZOLE [Concomitant]
  3. MILK THISTLE [Concomitant]
  4. PRAVASTATIN SODIUM [Concomitant]
  5. PROCRIT [Concomitant]
  6. VITAMINS (UNSPECIFIED) [Concomitant]
  7. REBETOL [Suspect]
  8. ASPIRIN [Concomitant]
  9. TOPROL-XL [Concomitant]

REACTIONS (5)
  - PAIN [None]
  - NAUSEA [None]
  - DECREASED APPETITE [None]
  - FATIGUE [None]
  - ANAEMIA [None]
